FAERS Safety Report 8297219-9 (Version None)
Quarter: 2012Q2

REPORT INFORMATION
  Report Type: 
  Country: None (occurrence: None)
  Receive Date: 20120419
  Receipt Date: 20120412
  Transmission Date: 20120825
  Serious: Yes (Hospitalization)
  Sender: FDA-Public Use
  Company Number: US-BAYER-2011-067737

PATIENT
  Age: 24 Year
  Sex: Female
  Weight: 91 kg

DRUGS (9)
  1. METFORMIN HCL [Concomitant]
     Dosage: 500 MG, UNK
     Route: 048
     Dates: start: 20090701, end: 20090822
  2. CLOTRIMAZOLE W/BETAMETHASONE DIPROPIONAT [Concomitant]
     Dosage: UNK
     Dates: start: 20090605
  3. MOTRIN [Concomitant]
     Dosage: UNK
     Dates: start: 20090723
  4. PROMETHAZINE [Concomitant]
     Dosage: UNK
     Dates: start: 20090723
  5. SYNTHROID [Concomitant]
     Dosage: 50 MCG/24HR, UNK
     Route: 048
     Dates: start: 20090619, end: 20090822
  6. TERBINAFINE HCL [Concomitant]
     Dosage: 250 MG, UNK
     Dates: start: 20090616
  7. MIRALAX [Concomitant]
     Dosage: UNK
     Dates: start: 20090723
  8. YAZ [Suspect]
     Indication: ACNE
     Dosage: UNK
     Dates: start: 20081101
  9. XYZAL [Concomitant]
     Dosage: 5 MG, UNK
     Dates: start: 20090507

REACTIONS (6)
  - CHOLECYSTITIS [None]
  - ABDOMINAL PAIN [None]
  - FATIGUE [None]
  - CHOLELITHIASIS [None]
  - PAIN [None]
  - ABDOMINAL DISTENSION [None]
